FAERS Safety Report 7590804-9 (Version None)
Quarter: 2011Q3

REPORT INFORMATION
  Report Type: 
  Country: None (occurrence: None)
  Receive Date: 20110705
  Receipt Date: 20110621
  Transmission Date: 20111222
  Serious: Yes (Other)
  Sender: FDA-Public Use
  Company Number: JP-PFIZER INC-2011127206

PATIENT
  Age: 76 Year
  Sex: Male

DRUGS (4)
  1. MYONAL [Suspect]
     Route: 048
  2. LOXONIN [Suspect]
  3. METHYCOBAL [Suspect]
  4. AMLODIPINE [Suspect]
     Indication: HYPERTENSION
     Dosage: 2.5 MG, UNK
     Route: 048
     Dates: start: 20110128, end: 20110523

REACTIONS (1)
  - HYPOGLYCAEMIA [None]
